FAERS Safety Report 7335017-0 (Version None)
Quarter: 2011Q1

REPORT INFORMATION
  Report Type: 
  Country: None (occurrence: None)
  Receive Date: 20110307
  Receipt Date: 20110223
  Transmission Date: 20110831
  Serious: Yes (Other)
  Sender: FDA-Public Use
  Company Number: TW-ROCHE-763170

PATIENT
  Age: 13 Year
  Sex: Male

DRUGS (1)
  1. OSELTAMIVIR [Suspect]
     Indication: H1N1 INFLUENZA
     Dosage: FOR 5 DAYS
     Route: 065

REACTIONS (3)
  - DEREALISATION [None]
  - DEPERSONALISATION [None]
  - VOMITING [None]
